FAERS Safety Report 13297858 (Version 1)
Quarter: 2017Q1

REPORT INFORMATION
  Report Type: Spontaneous
  Country: US (occurrence: US)
  Receive Date: 20170303
  Receipt Date: 20170303
  Transmission Date: 20170428
  Serious: No
  Sender: FDA-Public Use
  Company Number: None

PATIENT
  Sex: Male

DRUGS (1)
  1. HUMIRA [Suspect]
     Active Substance: ADALIMUMAB
     Route: 058
     Dates: start: 20160716

REACTIONS (8)
  - Pain in extremity [None]
  - Arthralgia [None]
  - Weight increased [None]
  - Anxiety [None]
  - Fatigue [None]
  - Back pain [None]
  - Depression [None]
  - Musculoskeletal pain [None]
